FAERS Safety Report 7281999-5 (Version None)
Quarter: 2011Q1

REPORT INFORMATION
  Report Type: 
  Country: None (occurrence: None)
  Receive Date: 20110208
  Receipt Date: 20110203
  Transmission Date: 20110831
  Serious: Yes (Hospitalization)
  Sender: FDA-Public Use
  Company Number: US-PFIZER INC-2011025347

PATIENT
  Sex: Male
  Weight: 63.49 kg

DRUGS (2)
  1. EFFEXOR [Suspect]
     Indication: BIPOLAR I DISORDER
     Dosage: 150 MG, 3X/DAY
     Route: 048
     Dates: end: 20101101
  2. VENLAFAXINE HYDROCHLORIDE [Suspect]
     Indication: BIPOLAR I DISORDER
     Dosage: 150 MG, 3X/DAY
     Route: 048
     Dates: start: 20101101, end: 20101201

REACTIONS (4)
  - EMPHYSEMA [None]
  - HYPERTENSION [None]
  - DRUG INEFFECTIVE [None]
  - CHRONIC OBSTRUCTIVE PULMONARY DISEASE [None]
